FAERS Safety Report 19595073 (Version 3)
Quarter: 2021Q3

REPORT INFORMATION
  Report Type: Spontaneous
  Country: US (occurrence: US)
  Receive Date: 20210722
  Receipt Date: 20210917
  Transmission Date: 20211014
  Serious: No
  Sender: FDA-Public Use
  Company Number: US-PFIZER INC-2021777295

PATIENT
  Age: 6 Year
  Sex: Female
  Weight: 17.69 kg

DRUGS (2)
  1. GENOTROPIN [Suspect]
     Active Substance: SOMATROPIN
     Dosage: 0.6 MG, DAILY
     Dates: start: 20210607
  2. GENOTROPIN [Suspect]
     Active Substance: SOMATROPIN
     Dosage: 0.6 MG
     Dates: start: 202107

REACTIONS (5)
  - Poor quality device used [Unknown]
  - Injury associated with device [Unknown]
  - Injection site bruising [Unknown]
  - Wrong technique in device usage process [Unknown]
  - Needle issue [Unknown]
